FAERS Safety Report 6913995-9 (Version None)
Quarter: 2010Q3

REPORT INFORMATION
  Report Type: 
  Country: None (occurrence: None)
  Receive Date: 20100809
  Receipt Date: 20100726
  Transmission Date: 20110219
  Serious: Yes (Hospitalization)
  Sender: FDA-Public Use
  Company Number: PHHY2010CA48971

PATIENT
  Sex: Female

DRUGS (3)
  1. DIOVAN HCT [Suspect]
     Indication: HYPERTENSION
     Dosage: 1 DF, QD
  2. DIOVAN HCT [Suspect]
     Dosage: 2 DF, QD
     Dates: start: 20100721
  3. SYNTHROID [Concomitant]

REACTIONS (1)
  - HEART RATE DECREASED [None]
